FAERS Safety Report 8394975-6 (Version None)
Quarter: 2012Q2

REPORT INFORMATION
  Report Type: 
  Country: None (occurrence: None)
  Receive Date: 20120530
  Receipt Date: 20120223
  Transmission Date: 20120825
  Serious: No
  Sender: FDA-Public Use
  Company Number: US-GLAXOSMITHKLINE-A0968235A

PATIENT
  Age: 48 Year
  Sex: Male

DRUGS (2)
  1. FLOLAN [Suspect]
     Indication: PORTAL HYPERTENSION
     Dosage: 13NGKM UNKNOWN
     Route: 042
     Dates: start: 20081024
  2. REVATIO [Suspect]
     Dosage: 20MG THREE TIMES PER DAY

REACTIONS (1)
  - MOUTH ULCERATION [None]
